FAERS Safety Report 14210458 (Version 3)
Quarter: 2018Q1

REPORT INFORMATION
  Report Type: Spontaneous
  Country: US (occurrence: US)
  Receive Date: 20171121
  Receipt Date: 20180125
  Transmission Date: 20180508
  Serious: No
  Sender: FDA-Public Use
  Company Number: US-GLAXOSMITHKLINE-US2017177033

PATIENT
  Age: 4 Year
  Sex: Male
  Weight: 20.41 kg

DRUGS (1)
  1. CEFTIN [Suspect]
     Active Substance: CEFUROXIME AXETIL
     Indication: EAR INFECTION
     Dosage: 6 ML, BID
     Route: 048
     Dates: start: 20171108

REACTIONS (5)
  - Epigastric discomfort [Unknown]
  - Vomiting [Recovered/Resolved]
  - Retching [Recovered/Resolved]
  - Underdose [Unknown]
  - Product quality issue [Unknown]

NARRATIVE: CASE EVENT DATE: 201711
